FAERS Safety Report 14586174 (Version 1)
Quarter: 2018Q1

REPORT INFORMATION
  Report Type: Other
  Country: US (occurrence: US)
  Receive Date: 20180301
  Receipt Date: 20180301
  Transmission Date: 20180509
  Serious: Yes (Other)
  Sender: FDA-Public Use
  Company Number: US-VELOXIS PHARMACEUTICALS-2042803

PATIENT
  Age: 59 Year
  Sex: Male

DRUGS (9)
  1. PREDNISONE. [Concomitant]
     Active Substance: PREDNISONE
  2. MYCOPHENOLATE MOFETIL. [Concomitant]
     Active Substance: MYCOPHENOLATE MOFETIL
  3. PREDNISONE. [Concomitant]
     Active Substance: PREDNISONE
  4. IMMUNOGLOBULIN /07494701/ [Concomitant]
     Active Substance: IMMUNE GLOBULIN NOS
  5. ENVARSUS XR [Suspect]
     Active Substance: TACROLIMUS
     Indication: LIVER TRANSPLANT
  6. SOLU-MEDROL [Concomitant]
     Active Substance: METHYLPREDNISOLONE SODIUM SUCCINATE
  7. METHYLPREDNISOLONE /00049602/ [Concomitant]
     Active Substance: METHYLPREDNISOLONE
  8. EVEROLIMUS. [Concomitant]
     Active Substance: EVEROLIMUS
  9. VALGANCICLOVIR. [Concomitant]
     Active Substance: VALGANCICLOVIR

REACTIONS (4)
  - Epstein-Barr virus infection [Recovered/Resolved]
  - Liver transplant rejection [Recovered/Resolved]
  - Epstein-Barr virus associated lymphoproliferative disorder [Unknown]
  - Intentional product use issue [Unknown]
